FAERS Safety Report 15677550 (Version 2)
Quarter: 2018Q4

REPORT INFORMATION
  Report Type: Report from Study
  Country: US (occurrence: US)
  Receive Date: 20181130
  Receipt Date: 20181206
  Transmission Date: 20190205
  Serious: Yes (Hospitalization)
  Sender: FDA-Public Use
  Company Number: US-PFIZER INC-2018484779

PATIENT
  Age: 16 Year
  Sex: Male
  Weight: 52.9 kg

DRUGS (22)
  1. DEXAMETHASONE. [Suspect]
     Active Substance: DEXAMETHASONE
     Dosage: 5 MG/M2, BID ON DAYS 1-5, CYCLES 1, 3(CYCLE= 21 DAYS)
     Route: 048
  2. METHOTREXATE. [Concomitant]
     Active Substance: METHOTREXATE
     Dosage: 3000 MG/M2, OVER 3 HOURS ON DAY 1, COURSE B: CYCLES 2, 4 AND 6 (CYCLE= 21 DAYS)
     Route: 042
  3. CYTARABINE. [Suspect]
     Active Substance: CYTARABINE
     Indication: ANAPLASTIC LARGE CELL LYMPHOMA T- AND NULL-CELL TYPES
     Dosage: 150 MG/M2, OVER 1-30 MINUTES Q12 HOURS ON DAYS 4 AND 5 (TOTAL 4 DOSES), CYCLES 5 (CYCLE= 21)
     Route: 042
     Dates: start: 20181113, end: 20181115
  4. CYTARABINE. [Suspect]
     Active Substance: CYTARABINE
     Dosage: 150 MG/M2, OVER 1-30 MINUTES Q12 HOURS ON DAYS 4 AND 5 (TOTAL 4 DOSES), CYCLES 1, 3 (CYCLE= 21)
     Route: 042
  5. VP-16 [Suspect]
     Active Substance: ETOPOSIDE
     Indication: ANAPLASTIC LARGE CELL LYMPHOMA T- AND NULL-CELL TYPES
     Dosage: 100 MG/M2, OVER 2 HOURS ON DAYS 4 AND 5, CYCLES 5 (CYCLE= 21 DAYS)
     Route: 042
     Dates: start: 20181113, end: 20181114
  6. VP-16 [Suspect]
     Active Substance: ETOPOSIDE
     Dosage: 100 MG/M2, OVER 2 HOURS ON DAYS 4 AND 5, CYCLES 1, 3 (CYCLE= 21 DAYS)
     Route: 042
  7. DOXORUBICIN HCL [Suspect]
     Active Substance: DOXORUBICIN HYDROCHLORIDE
     Indication: ANAPLASTIC LARGE CELL LYMPHOMA T- AND NULL-CELL TYPES
     Dosage: 25 MG/M2, OVER 1-15 MIN ON DAYS 4 AND 5, CYCLES 2, 4 AND 6 (CYCLE= 21 DAYS)
     Route: 042
     Dates: end: 20181024
  8. DEXAMETHASONE. [Suspect]
     Active Substance: DEXAMETHASONE
     Dosage: 5 MG/M2, BID ON DAYS 1-5, CYCLES 2, 4 AND 6 (CYCLE= 21 DAYS)
     Route: 048
  9. HYDROCORTISONE. [Concomitant]
     Active Substance: HYDROCORTISONE
     Dosage: 7.5-12MG ON DAY 1 (AGE BASED DOSING), PROPHASE (CYCLE = 5 DAYS)
     Route: 037
  10. CYCLOPHOSPHAMIDE. [Suspect]
     Active Substance: CYCLOPHOSPHAMIDE
     Indication: ANAPLASTIC LARGE CELL LYMPHOMA T- AND NULL-CELL TYPES
     Dosage: 200 MG/M2, OVER 15-30 MINUTES ON DAYS 1 AND 2, PROPHASE (CYCLE = 5 DAYS)
     Route: 042
  11. IFOSFAMIDE. [Suspect]
     Active Substance: IFOSFAMIDE
     Dosage: 800 MG/M2, OVER 60 MIN ON DAYS 1-5, CYCLES 1, 3 (CYCLE= 21 DAYS)
     Route: 042
  12. CYTARABINE. [Suspect]
     Active Substance: CYTARABINE
     Dosage: 15-24MG ON DAY 1 (AGE BASED DOSING), PROPHASE (CYCLE = 5 DAYS)
     Route: 037
  13. PF-02341066 [Suspect]
     Active Substance: CRIZOTINIB
     Dosage: 165 MG/M2, BID ON DAYS 1-21, COURSE B: CYCLES 2, 4 AND 6 (CYCLE= 21 DAYS)
     Route: 048
  14. PF-02341066 [Suspect]
     Active Substance: CRIZOTINIB
     Indication: ANAPLASTIC LARGE CELL LYMPHOMA T- AND NULL-CELL TYPES
     Dosage: 165 MG/M2, BID ON DAYS 1-21, COURSE A: CYCLES 5 (CYCLE= 21 DAYS)
     Route: 048
     Dates: start: 20181110, end: 20181117
  15. CYCLOPHOSPHAMIDE. [Suspect]
     Active Substance: CYCLOPHOSPHAMIDE
     Dosage: 200 MG/M2, OVER 15-30 MINUTES ON DAYS 1-5, CYCLES 2, 4 AND 6 (CYCLE= 21 DAYS)
     Route: 042
     Dates: end: 20181024
  16. DEXAMETHASONE. [Suspect]
     Active Substance: DEXAMETHASONE
     Dosage: 5 MG/M2, QD ON DAYS 1-2, AND 5MG/M2 PO BID ON DAYS 3-5, PROPHASE (CYCLE = 5 DAYS)
     Route: 048
  17. METHOTREXATE. [Concomitant]
     Active Substance: METHOTREXATE
     Indication: ANAPLASTIC LARGE CELL LYMPHOMA T- AND NULL-CELL TYPES
     Dosage: 3000 MG/M2, OVER 3 HOURS ON DAY 1, COURSE A: CYCLES 5 (CYCLE= 21 DAYS)
     Route: 042
     Dates: start: 20181110, end: 20181110
  18. METHOTREXATE. [Concomitant]
     Active Substance: METHOTREXATE
     Dosage: 7.5-12 MG, ON DAY 1 (AGE BASED DOSING), PROPHASE (CYCLE = 5 DAYS)
     Route: 037
  19. PF-02341066 [Suspect]
     Active Substance: CRIZOTINIB
     Dosage: 165 MG/M2, BID ON DAYS 1-21, COURSE A: CYCLES 1, 3 (CYCLE= 21 DAYS)
     Route: 048
  20. DEXAMETHASONE. [Suspect]
     Active Substance: DEXAMETHASONE
     Indication: ANAPLASTIC LARGE CELL LYMPHOMA T- AND NULL-CELL TYPES
     Dosage: 5 MG/M2, BID ON DAYS 1-5, CYCLES 5(CYCLE= 21 DAYS)
     Route: 048
     Dates: start: 20181110, end: 20181114
  21. IFOSFAMIDE. [Suspect]
     Active Substance: IFOSFAMIDE
     Indication: ANAPLASTIC LARGE CELL LYMPHOMA T- AND NULL-CELL TYPES
     Dosage: 800 MG/M2, OVER 60 MIN ON DAYS 1-5, CYCLES 5 (CYCLE= 21 DAYS)
     Route: 042
     Dates: start: 20181110, end: 20181114
  22. METHOTREXATE. [Concomitant]
     Active Substance: METHOTREXATE
     Dosage: 3000 MG/M2, OVER 3 HOURS ON DAY 1, COURSE A: CYCLES 1, 3 (CYCLE= 21 DAYS)
     Route: 042

REACTIONS (1)
  - Hypotension [Recovered/Resolved]

NARRATIVE: CASE EVENT DATE: 20181117
